FAERS Safety Report 20559041 (Version 1)
Quarter: 2022Q1

REPORT INFORMATION
  Report Type: Spontaneous
  Country: US (occurrence: None)
  Receive Date: 20220304
  Receipt Date: 20220304
  Transmission Date: 20220424
  Serious: Yes (Hospitalization)
  Sender: FDA-Public Use
  Company Number: None

PATIENT
  Sex: Female

DRUGS (1)
  1. HUMIRA [Suspect]
     Active Substance: ADALIMUMAB
     Indication: Ankylosing spondylitis
     Dosage: 40 MG/0.8ML?? INJECT 1 SYRINGE UNDER THE SKIN (SUBCUTANEOUS  INJECTION) ONCE EVERY 14 DAYS?
     Route: 058
     Dates: start: 20190503

REACTIONS (1)
  - Surgery [None]
